FAERS Safety Report 24311980 (Version 1)
Quarter: 2024Q3

REPORT INFORMATION
  Report Type: Spontaneous
  Country: JP (occurrence: JP)
  Receive Date: 20240912
  Receipt Date: 20240912
  Transmission Date: 20241017
  Serious: Yes (Other)
  Sender: RELIANCE GENEMEDIX
  Company Number: JP-Reliance-000416

PATIENT
  Age: 71 Year
  Sex: Female

DRUGS (2)
  1. CAPECITABINE [Suspect]
     Active Substance: CAPECITABINE
     Indication: Colorectal cancer stage II
     Dosage: 3,600 MG/DAY, 2 WEEKS FOLLOWED BY 1 WEEK BREAK, TOTAL OF 8 COURSES
  2. PILSICAINIDE [Concomitant]
     Active Substance: PILSICAINIDE
     Indication: Arrhythmia

REACTIONS (4)
  - Diarrhoea [Unknown]
  - Decreased appetite [Unknown]
  - Mesenteric vein thrombosis [Recovered/Resolved]
  - Dehydration [Unknown]

NARRATIVE: CASE EVENT DATE: 20200501
